FAERS Safety Report 7975524-0 (Version None)
Quarter: 2011Q4

REPORT INFORMATION
  Report Type: 
  Country: None (occurrence: None)
  Receive Date: 20111213
  Receipt Date: 20110930
  Transmission Date: 20120403
  Serious: Yes (Hospitalization)
  Sender: FDA-Public Use
  Company Number: US-AMGEN-USASP2011050739

PATIENT
  Age: 75 Year
  Sex: Female

DRUGS (1)
  1. ENBREL [Suspect]
     Indication: RHEUMATOID ARTHRITIS
     Dosage: UNK
     Dates: start: 20061205

REACTIONS (6)
  - INJECTION SITE LACERATION [None]
  - INJECTION SITE PAIN [None]
  - PNEUMONIA [None]
  - GAIT DISTURBANCE [None]
  - PAIN [None]
  - MUSCULAR WEAKNESS [None]
